FAERS Safety Report 6181895-0 (Version None)
Quarter: 2009Q2

REPORT INFORMATION
  Report Type: 
  Country: None (occurrence: None)
  Receive Date: 20090420
  Receipt Date: 20090409
  Transmission Date: 20091009
  Serious: Yes (Hospitalization)
  Sender: FDA-Public Use
  Company Number: AEDEU200900086

PATIENT
  Age: 26 Year
  Sex: Male

DRUGS (4)
  1. PROLASTIN [Suspect]
     Indication: DRUG USE FOR UNKNOWN INDICATION
     Dosage: 3 GM; IV
     Route: 042
     Dates: start: 20090305, end: 20090331
  2. VIANI (CON.) [Concomitant]
  3. SPIRIVA (CON.) [Concomitant]
  4. CHAMPIX (CON.) [Concomitant]

REACTIONS (6)
  - DIZZINESS [None]
  - HYPERHIDROSIS [None]
  - HYPOTONIA [None]
  - LOSS OF CONSCIOUSNESS [None]
  - NAUSEA [None]
  - TACHYCARDIA [None]
